FAERS Safety Report 6713886-2 (Version None)
Quarter: 2010Q2

REPORT INFORMATION
  Report Type: 
  Country: None (occurrence: None)
  Receive Date: 20100506
  Receipt Date: 20100428
  Transmission Date: 20101027
  Serious: Yes (Other)
  Sender: FDA-Public Use
  Company Number: US-PFIZER INC-2010054644

PATIENT
  Sex: Female

DRUGS (6)
  1. ZOLOFT [Suspect]
     Indication: DEPRESSION
     Dosage: 25 MG, 1X/DAY
     Route: 048
     Dates: start: 20010101
  2. LISINOPRIL [Concomitant]
     Dosage: UNK
  3. KLONOPIN [Concomitant]
     Dosage: UNK
  4. ZOCOR [Concomitant]
     Dosage: UNK
  5. WELLBUTRIN [Concomitant]
     Dosage: UNK
  6. TRILEPTAL [Concomitant]
     Dosage: UNK

REACTIONS (2)
  - BREAST CANCER [None]
  - SEXUAL DYSFUNCTION [None]
